FAERS Safety Report 10525280 (Version 1)
Quarter: 2014Q4

REPORT INFORMATION
  Report Type: Spontaneous
  Country: US (occurrence: None)
  Receive Date: 20141015
  Receipt Date: 20141015
  Transmission Date: 20150528
  Serious: Yes (Other)
  Sender: FDA-Public Use
  Company Number: None

PATIENT
  Age: 48 Year
  Sex: Female
  Weight: 58.97 kg

DRUGS (1)
  1. MIRVASO [Suspect]
     Active Substance: BRIMONIDINE TARTRATE
     Indication: ROSACEA
     Dosage: PEA SIZE TO DIRECTED AREA; APPLIED TO A SURFACE, USUALLY THE SKIN
     Dates: start: 20141009, end: 20141012

REACTIONS (1)
  - Rash [None]

NARRATIVE: CASE EVENT DATE: 20141012
